FAERS Safety Report 12071934 (Version 1)
Quarter: 2016Q1

REPORT INFORMATION
  Report Type: Not Available
  Country: FR (occurrence: FR)
  Receive Date: 20160212
  Receipt Date: 20160212
  Transmission Date: 20160526
  Serious: Yes (Hospitalization)
  Sender: FDA-Public Use
  Company Number: FR-BEH-2016058446

PATIENT
  Age: 67 Year
  Sex: Male

DRUGS (12)
  1. FLUVASTATIN BASE [Concomitant]
     Route: 048
  2. PRIVIGEN [Suspect]
     Active Substance: HUMAN IMMUNOGLOBULIN G
     Route: 042
     Dates: start: 20151118
  3. PRIVIGEN [Suspect]
     Active Substance: HUMAN IMMUNOGLOBULIN G
     Route: 042
     Dates: start: 20151118
  4. PRIVIGEN [Suspect]
     Active Substance: HUMAN IMMUNOGLOBULIN G
     Indication: PRODUCT USED FOR UNKNOWN INDICATION
     Dosage: START DATE: ??-SEP-2014; 1ST DAY: 50 G, 2ND DAY: 60 G, 3RD DAY: 50 G
     Route: 042
  5. ESIDREX 25 MG [Concomitant]
     Route: 048
  6. LYRICA 150 MG [Concomitant]
     Route: 048
  7. PRIVIGEN [Suspect]
     Active Substance: HUMAN IMMUNOGLOBULIN G
     Route: 042
     Dates: start: 20151120
  8. PRIVIGEN [Suspect]
     Active Substance: HUMAN IMMUNOGLOBULIN G
     Route: 042
     Dates: start: 20151120
  9. PRIVIGEN [Suspect]
     Active Substance: HUMAN IMMUNOGLOBULIN G
     Route: 042
     Dates: start: 20151119
  10. KARDEGIC 300 MG [Concomitant]
     Route: 048
  11. APROVEL [Concomitant]
     Active Substance: IRBESARTAN
     Route: 048
  12. DOLIPRANE [Concomitant]
     Active Substance: ACETAMINOPHEN
     Route: 048

REACTIONS (3)
  - Pulmonary embolism [Recovering/Resolving]
  - Pain in extremity [Unknown]
  - Dyspnoea [Unknown]

NARRATIVE: CASE EVENT DATE: 20160105
